FAERS Safety Report 4312179-0 (Version None)
Quarter: 2004Q1

REPORT INFORMATION
  Report Type: 
  Country: None (occurrence: None)
  Receive Date: 20040303
  Receipt Date: 20040223
  Transmission Date: 20041129
  Serious: Yes (Hospitalization)
  Sender: FDA-Public Use
  Company Number: US-JNJFOC-20040205586

PATIENT
  Age: 73 Year
  Sex: Female
  Weight: 58.514 kg

DRUGS (10)
  1. REMICADE [Suspect]
     Indication: RHEUMATOID ARTHRITIS
     Dosage: INTRAVENOUS
     Route: 042
     Dates: start: 20001002
  2. TENOX (TEMAZEPAM) [Concomitant]
  3. CARDIZEM [Concomitant]
  4. BEXTRA [Concomitant]
  5. PLAQUENIL [Concomitant]
  6. LISINOPRIL [Concomitant]
  7. OSCAL (CALCIUM CARBONATE) [Concomitant]
  8. MULTIVITAMIN (MULTIVITAMINS) [Concomitant]
  9. TYLENOL PM (TYLENOL PM) [Concomitant]
  10. FOSAMAX [Concomitant]

REACTIONS (6)
  - CAROTID ARTERY ATHEROMA [None]
  - HAEMATOCRIT DECREASED [None]
  - HAEMOGLOBIN DECREASED [None]
  - MEAN CELL HAEMOGLOBIN DECREASED [None]
  - MEAN CELL VOLUME DECREASED [None]
  - PLATELET COUNT INCREASED [None]
